FAERS Safety Report 6029929-8 (Version None)
Quarter: 2009Q1

REPORT INFORMATION
  Report Type: 
  Country: None (occurrence: None)
  Receive Date: 20090105
  Receipt Date: 20090105
  Transmission Date: 20090719
  Serious: No
  Sender: FDA-Public Use
  Company Number: None

PATIENT
  Age: 42 Year
  Weight: 72.5755 kg

DRUGS (2)
  1. EFFEXOR XR [Suspect]
     Indication: DEPRESSION
  2. EFFEXOR XR [Suspect]
     Indication: PAIN

REACTIONS (24)
  - ALTERED VISUAL DEPTH PERCEPTION [None]
  - ASTHENIA [None]
  - BLUNTED AFFECT [None]
  - CONVULSION [None]
  - DIZZINESS EXERTIONAL [None]
  - EMOTIONAL DISORDER [None]
  - FACIAL PAIN [None]
  - FEELING COLD [None]
  - FEELING DRUNK [None]
  - HALLUCINATION, VISUAL [None]
  - HUNGER [None]
  - HYPERACUSIS [None]
  - ILL-DEFINED DISORDER [None]
  - MYOCLONUS [None]
  - PAIN [None]
  - PARAESTHESIA [None]
  - PERSONALITY CHANGE [None]
  - STRESS [None]
  - TACHYCARDIA [None]
  - TIC [None]
  - TINNITUS [None]
  - TONIC CLONIC MOVEMENTS [None]
  - VISUAL IMPAIRMENT [None]
  - WITHDRAWAL SYNDROME [None]
